FAERS Safety Report 4775680-1 (Version None)
Quarter: 2005Q3

REPORT INFORMATION
  Report Type: 
  Country: None (occurrence: None)
  Receive Date: 20050920
  Receipt Date: 20050920
  Transmission Date: 20060218
  Serious: Yes (Hospitalization)
  Sender: FDA-Public Use
  Company Number: None

PATIENT
  Age: 34 Year
  Sex: Male
  Weight: 77.1115 kg

DRUGS (2)
  1. CIPRO [Suspect]
     Indication: LABYRINTHITIS
     Dosage: TABLET
     Route: 048
     Dates: start: 20040301, end: 20040330
  2. CIPRO [Suspect]
     Indication: LABYRINTHITIS
     Dosage: EARDROPS
     Dates: start: 20040301, end: 20040330

REACTIONS (1)
  - TENDON RUPTURE [None]
